FAERS Safety Report 8581761-7 (Version None)
Quarter: 2012Q3

REPORT INFORMATION
  Report Type: 
  Country: None (occurrence: None)
  Receive Date: 20120809
  Receipt Date: 20120731
  Transmission Date: 20120928
  Serious: Yes (Other)
  Sender: FDA-Public Use
  Company Number: CA-ASTRAZENECA-2012SE54444

PATIENT
  Age: 82 Year
  Sex: Female

DRUGS (2)
  1. TRAMADOL HCL [Concomitant]
     Indication: ARTHRITIS
     Dosage: DAILY DOSAGE: 100 MG, DOSE FREQUENCY: TWO TIMES A DAY
     Route: 048
  2. VIMOVO [Suspect]
     Indication: ARTHRITIS
     Dosage: 500/20 MG, TWO TIMES A DAY
     Route: 048
     Dates: start: 20120101, end: 20120710

REACTIONS (1)
  - EYE HAEMORRHAGE [None]
